FAERS Safety Report 5774473-6 (Version None)
Quarter: 2008Q2

REPORT INFORMATION
  Report Type: 
  Country: None (occurrence: None)
  Receive Date: 20080616
  Receipt Date: 20080616
  Transmission Date: 20081010
  Serious: Yes (Death)
  Sender: FDA-Public Use
  Company Number: US-BOEHRINGER INGELHEIM GMBH, GERMANY-2008-BP-08273BP

PATIENT
  Age: 60 Year
  Sex: Female
  Weight: 74 kg

DRUGS (12)
  1. SPIRIVA [Suspect]
     Indication: CHRONIC OBSTRUCTIVE PULMONARY DISEASE
     Route: 055
     Dates: start: 20071115, end: 20080524
  2. ADVAIR DISKUS 100/50 [Concomitant]
     Indication: CHRONIC OBSTRUCTIVE PULMONARY DISEASE
     Route: 055
     Dates: start: 20071115
  3. MULTI-VITAMIN [Concomitant]
     Route: 048
  4. FISH OIL [Concomitant]
  5. LIPITOR [Concomitant]
     Route: 048
  6. ALBUTEROL [Concomitant]
     Route: 055
  7. HYDRO/APAP [Concomitant]
     Route: 048
  8. LISINOPRIL [Concomitant]
     Route: 048
  9. METOPROLOL [Concomitant]
  10. FERROUS SULFATE TAB [Concomitant]
     Route: 048
  11. CHANTIX [Concomitant]
  12. CPAP [Concomitant]

REACTIONS (1)
  - MYOCARDIAL INFARCTION [None]
